FAERS Safety Report 13183923 (Version 1)
Quarter: 2017Q1

REPORT INFORMATION
  Report Type: Report from Study
  Country: US (occurrence: US)
  Receive Date: 20170203
  Receipt Date: 20170203
  Transmission Date: 20170428
  Serious: Yes (Other)
  Sender: FDA-Public Use
  Company Number: US-AMGEN-USASL2017015899

PATIENT
  Sex: Female

DRUGS (1)
  1. ENBREL [Suspect]
     Active Substance: ETANERCEPT
     Indication: PSORIASIS
     Dosage: 50 MG, EVERY FOUR DAYS
     Route: 058

REACTIONS (4)
  - Memory impairment [Unknown]
  - Injection site pain [Unknown]
  - Cerebral haemorrhage [Unknown]
  - Off label use [Unknown]
